FAERS Safety Report 19930450 (Version 3)
Quarter: 2021Q4

REPORT INFORMATION
  Report Type: Spontaneous
  Country: US (occurrence: US)
  Receive Date: 20211008
  Receipt Date: 20211108
  Transmission Date: 20220303
  Serious: Yes (Hospitalization)
  Sender: FDA-Public Use
  Company Number: US-GLAXOSMITHKLINE-US2021206891

PATIENT
  Sex: Female

DRUGS (1)
  1. ZEJULA [Suspect]
     Active Substance: NIRAPARIB
     Indication: Ovarian cancer
     Dosage: 300 MG, QD (EVERY EVENING)
     Dates: start: 20210910

REACTIONS (8)
  - Hospitalisation [Unknown]
  - Psychomotor hyperactivity [Unknown]
  - Tremor [Unknown]
  - Palpitations [Unknown]
  - Cognitive disorder [Unknown]
  - Platelet count decreased [Unknown]
  - Contusion [Unknown]
  - Oral contusion [Unknown]
